FAERS Safety Report 9360753 (Version 3)
Quarter: 2013Q3

REPORT INFORMATION
  Report Type: Spontaneous
  Country: CA (occurrence: CA)
  Receive Date: 20130621
  Receipt Date: 20130708
  Transmission Date: 20140515
  Serious: Yes (Death, Other)
  Sender: FDA-Public Use
  Company Number: CA-ROCHE-1238939

PATIENT
  Age: 57 Year
  Sex: Female

DRUGS (5)
  1. XOLAIR [Suspect]
     Indication: ASTHMA
     Route: 058
     Dates: start: 20130408
  2. HYDROMORPHONE [Concomitant]
  3. SINGULAIR [Concomitant]
  4. TIOTROPIUM [Concomitant]
  5. SALBUTAMOL [Concomitant]

REACTIONS (7)
  - Head injury [Fatal]
  - Cardiac arrest [Unknown]
  - Wheezing [Unknown]
  - Hypoxic-ischaemic encephalopathy [Unknown]
  - Heart rate increased [Unknown]
  - Injection site pruritus [Unknown]
  - Fall [Unknown]
